FAERS Safety Report 5021957-4 (Version None)
Quarter: 2006Q2

REPORT INFORMATION
  Report Type: 
  Country: None (occurrence: None)
  Receive Date: 20060605
  Receipt Date: 20060523
  Transmission Date: 20061013
  Serious: Yes (Other)
  Sender: FDA-Public Use
  Company Number: 2006068368

PATIENT
  Sex: Male

DRUGS (3)
  1. ATORVASTATIN CALCIUM [Suspect]
     Indication: ILL-DEFINED DISORDER
     Dosage: 20 MG (20 MG, 1 IN 1 D), ORAL
     Route: 048
  2. METFORMIN [Suspect]
     Indication: ILL-DEFINED DISORDER
     Dosage: 1500 MG (DAILY), ORAL
     Route: 048
  3. AMARYL [Suspect]
     Indication: ILL-DEFINED DISORDER
     Dosage: 2 MG (2 MG, 1 IN 1 D), ORAL
     Route: 048

REACTIONS (1)
  - LIVER DISORDER [None]
